FAERS Safety Report 25795792 (Version 2)
Quarter: 2025Q4

REPORT INFORMATION
  Report Type: Report from Study
  Country: JP (occurrence: JP)
  Receive Date: 20250912
  Receipt Date: 20251006
  Transmission Date: 20260118
  Serious: Yes (Death)
  Sender: GILEAD
  Company Number: JP-GILEAD-2025-0727721

PATIENT
  Age: 64 Year
  Sex: Female

DRUGS (3)
  1. REMDESIVIR [Suspect]
     Active Substance: REMDESIVIR
     Indication: COVID-19
     Dosage: UNK
     Route: 065
     Dates: start: 20230928, end: 20231007
  2. LAGEVRIO [Concomitant]
     Active Substance: MOLNUPIRAVIR
     Dosage: UNK
     Dates: start: 20230915, end: 20230919
  3. NIRMATRELVIR\RITONAVIR [Concomitant]
     Active Substance: NIRMATRELVIR\RITONAVIR

REACTIONS (3)
  - COVID-19 [Fatal]
  - SARS-CoV-2 RNA increased [Unknown]
  - Drug resistance mutation [Unknown]

NARRATIVE: CASE EVENT DATE: 20230101
